FAERS Safety Report 16756288 (Version 3)
Quarter: 2019Q3

REPORT INFORMATION
  Report Type: Report from Study
  Country: US (occurrence: US)
  Receive Date: 20190829
  Receipt Date: 20190930
  Transmission Date: 20191005
  Serious: No
  Sender: FDA-Public Use
  Company Number: US-TESAROUBC-2019-TSO02970-US

PATIENT
  Age: 61 Year
  Sex: Female
  Weight: 58.2 kg

DRUGS (3)
  1. NIRAPARIB [Suspect]
     Active Substance: NIRAPARIB
     Dosage: 400 MG, UNK
     Route: 048
     Dates: start: 20190108
  2. NIRAPARIB [Suspect]
     Active Substance: NIRAPARIB
     Dosage: 100 MG, Q3 WEEKS
     Route: 048
     Dates: start: 20181107
  3. BEVACIZUMAB. [Suspect]
     Active Substance: BEVACIZUMAB
     Dosage: 861 MG, Q3 WEEKS
     Route: 042
     Dates: start: 20181107, end: 20181219

REACTIONS (1)
  - Pneumonitis [Recovered/Resolved]

NARRATIVE: CASE EVENT DATE: 20190130
